FAERS Safety Report 5852934-9 (Version None)
Quarter: 2008Q3

REPORT INFORMATION
  Report Type: 
  Country: None (occurrence: None)
  Receive Date: 20080814
  Receipt Date: 20080425
  Transmission Date: 20090109
  Serious: No
  Sender: FDA-Public Use
  Company Number: PHEH2008US03841

PATIENT
  Age: 64 Year
  Sex: Male

DRUGS (1)
  1. TEKTURNA HCT [Suspect]
     Indication: HYPERTENSION
     Dosage: 300MGALIS/25MGHCT,ORAL
     Route: 048
     Dates: start: 20080301, end: 20080401

REACTIONS (1)
  - BLOOD PRESSURE INCREASED [None]
